FAERS Safety Report 22534388 (Version 7)
Quarter: 2024Q1

REPORT INFORMATION
  Report Type: Spontaneous
  Country: US (occurrence: None)
  Receive Date: 20230608
  Receipt Date: 20240320
  Transmission Date: 20240410
  Serious: Yes (Other)
  Sender: FDA-Public Use
  Company Number: US-ROCHE-3356447

PATIENT
  Age: 89 Year
  Sex: Male

DRUGS (4)
  1. VABYSMO [Suspect]
     Active Substance: FARICIMAB\FARICIMAB-SVOA
     Indication: Age-related macular degeneration
     Dosage: INJECTED RIGHT EYE
     Route: 050
     Dates: start: 20230414, end: 20230414
  2. VABYSMO [Suspect]
     Active Substance: FARICIMAB\FARICIMAB-SVOA
     Dosage: INJECTED RIGHT EYE
     Route: 050
     Dates: start: 20230414, end: 20230414
  3. LUCENTIS [Suspect]
     Active Substance: RANIBIZUMAB
     Indication: Age-related macular degeneration
     Route: 050
     Dates: start: 20120328, end: 20120815
  4. EYLEA [Suspect]
     Active Substance: AFLIBERCEPT
     Indication: Age-related macular degeneration
     Route: 050
     Dates: start: 20120912, end: 20230209

REACTIONS (4)
  - Non-infectious endophthalmitis [Not Recovered/Not Resolved]
  - Vitrectomy [Unknown]
  - Suspected transmission of an infectious agent via product [Unknown]
  - Product complaint [Unknown]

NARRATIVE: CASE EVENT DATE: 20230415
